FAERS Safety Report 12068143 (Version 10)
Quarter: 2016Q3

REPORT INFORMATION
  Report Type: Report from Study
  Country: CA (occurrence: CA)
  Receive Date: 20160211
  Receipt Date: 20160829
  Transmission Date: 20161109
  Serious: Yes (Other)
  Sender: FDA-Public Use
  Company Number: CA-ROCHE-1629781

PATIENT
  Age: 58 Year
  Sex: Male

DRUGS (16)
  1. VORICONAZOLE. [Suspect]
     Active Substance: VORICONAZOLE
     Indication: PRODUCT USED FOR UNKNOWN INDICATION
     Route: 048
  2. SEPTRA SS [Concomitant]
     Route: 065
  3. BACTRIM [Concomitant]
     Active Substance: SULFAMETHOXAZOLE\TRIMETHOPRIM
  4. PANTOLOC [Concomitant]
     Active Substance: PANTOPRAZOLE SODIUM
  5. ALTACE [Concomitant]
     Active Substance: RAMIPRIL
     Route: 065
  6. DIPHENHYDRAMINE. [Concomitant]
     Active Substance: DIPHENHYDRAMINE
     Indication: PREMEDICATION
     Route: 048
     Dates: start: 20150723
  7. TESTOSTERONE. [Concomitant]
     Active Substance: TESTOSTERONE
  8. FOLIC ACID. [Concomitant]
     Active Substance: FOLIC ACID
  9. PREDNISOLONE. [Concomitant]
     Active Substance: PREDNISOLONE
     Indication: PREMEDICATION
     Route: 042
     Dates: start: 20150723
  10. RITUXAN [Suspect]
     Active Substance: RITUXIMAB
     Indication: VASCULITIS
     Dosage: 4- 3758MG X 45- FOR INDUCTION, NOT FOR MAINTENANCE?ON HOLD
     Route: 042
     Dates: start: 20150723
  11. ACETAMINOPHEN. [Concomitant]
     Active Substance: ACETAMINOPHEN
     Indication: PREMEDICATION
     Route: 048
     Dates: start: 20150723
  12. METHOTREXATE. [Concomitant]
     Active Substance: METHOTREXATE
     Route: 065
     Dates: start: 1994
  13. AVELOX [Concomitant]
     Active Substance: MOXIFLOXACIN HYDROCHLORIDE
  14. ALTACE [Concomitant]
     Active Substance: RAMIPRIL
     Route: 065
  15. SELENIUM [Concomitant]
     Active Substance: SELENIUM
  16. LOSEC [Concomitant]
     Active Substance: OMEPRAZOLE
     Route: 065

REACTIONS (36)
  - Aspergillus test positive [Unknown]
  - Red blood cell sedimentation rate increased [Unknown]
  - Nephrolithiasis [Not Recovered/Not Resolved]
  - Nodule [Not Recovered/Not Resolved]
  - Protein urine present [Not Recovered/Not Resolved]
  - Back pain [Not Recovered/Not Resolved]
  - Arthralgia [Unknown]
  - Haemoglobin decreased [Unknown]
  - Musculoskeletal stiffness [Unknown]
  - Blood urine present [Unknown]
  - Cough [Recovered/Resolved]
  - Anosmia [Not Recovered/Not Resolved]
  - X-ray abnormal [Unknown]
  - White blood cell count increased [Unknown]
  - Computerised tomogram thorax abnormal [Not Recovered/Not Resolved]
  - Spinal disorder [Not Recovered/Not Resolved]
  - Nephropathy [Unknown]
  - Splinter [Unknown]
  - Vasculitis [Unknown]
  - Eye haemorrhage [Not Recovered/Not Resolved]
  - Blood creatinine increased [Not Recovered/Not Resolved]
  - Aspergillus infection [Not Recovered/Not Resolved]
  - Ill-defined disorder [Not Recovered/Not Resolved]
  - C-reactive protein increased [Not Recovered/Not Resolved]
  - Antineutrophil cytoplasmic antibody increased [Not Recovered/Not Resolved]
  - Pyrexia [Not Recovered/Not Resolved]
  - Lung infection [Not Recovered/Not Resolved]
  - Campylobacter infection [Recovered/Resolved]
  - Red blood cells urine [Not Recovered/Not Resolved]
  - Herpes simplex [Not Recovered/Not Resolved]
  - Dyspnoea [Unknown]
  - Erythema [Unknown]
  - Nerve compression [Not Recovered/Not Resolved]
  - Granulomatosis with polyangiitis [Unknown]
  - Myalgia [Unknown]
  - Dyspnoea [Not Recovered/Not Resolved]

NARRATIVE: CASE EVENT DATE: 201508
